FAERS Safety Report 5302053-5 (Version None)
Quarter: 2007Q2

REPORT INFORMATION
  Report Type: 
  Country: None (occurrence: None)
  Receive Date: 20070413
  Receipt Date: 20070410
  Transmission Date: 20071010
  Serious: Yes (Life-Threatening)
  Sender: FDA-Public Use
  Company Number: THQ2007A00287

PATIENT

DRUGS (4)
  1. PIOGLITAZONE HCL [Suspect]
     Indication: INSULIN-REQUIRING TYPE II DIABETES MELLITUS
     Dosage: 15 MG (15 MG, 1 IN 1 D)
     Route: 048
  2. AMARLY (GLIMEPIRIDE) [Concomitant]
  3. HYDROCHLOROTHIAZIDE, VALSARTAN [Concomitant]
  4. PLAVIX [Concomitant]

REACTIONS (1)
  - HYPOGLYCAEMIC COMA [None]
